FAERS Safety Report 17257584 (Version 7)
Quarter: 2022Q2

REPORT INFORMATION
  Report Type: Spontaneous
  Country: US (occurrence: US)
  Receive Date: 20200110
  Receipt Date: 20220602
  Transmission Date: 20220721
  Serious: Yes (Hospitalization, Other)
  Sender: FDA-Public Use
  Company Number: US-PFIZER INC-2020007690

PATIENT
  Age: 46 Year
  Sex: Female

DRUGS (1)
  1. XELJANZ [Suspect]
     Active Substance: TOFACITINIB CITRATE
     Indication: Alopecia totalis
     Dosage: 5 MG, 2X/DAY (TAKE ONE IN THE MORNING AND ONE IN THE EVENING)

REACTIONS (15)
  - COVID-19 pneumonia [Recovered/Resolved]
  - Acute respiratory failure [Recovered/Resolved]
  - Pneumonia bacterial [Unknown]
  - Orthostatic hypotension [Unknown]
  - Pulmonary embolism [Unknown]
  - Drug ineffective for unapproved indication [Unknown]
  - Off label use [Unknown]
  - Drug effective for unapproved indication [Unknown]
  - Influenza [Unknown]
  - Fall [Unknown]
  - Sinus disorder [Unknown]
  - Constipation [Recovered/Resolved]
  - Fungal infection [Recovered/Resolved]
  - Iron deficiency anaemia [Unknown]
  - Bundle branch block right [Unknown]

NARRATIVE: CASE EVENT DATE: 20211001
